FAERS Safety Report 22154326 (Version 1)
Quarter: 2023Q1

REPORT INFORMATION
  Report Type: Spontaneous
  Country: PT (occurrence: PT)
  Receive Date: 20230330
  Receipt Date: 20230330
  Transmission Date: 20230417
  Serious: Yes (Other)
  Sender: FDA-Public Use
  Company Number: PT-MLMSERVICE-20230207-4090431-1

PATIENT
  Age: 67 Year
  Sex: Female

DRUGS (1)
  1. CLOPIDOGREL [Suspect]
     Active Substance: CLOPIDOGREL BISULFATE
     Indication: Antiplatelet therapy
     Dosage: UNK
     Route: 048

REACTIONS (3)
  - Haematoma [Recovered/Resolved]
  - Dysphagia [Recovered/Resolved]
  - Neck pain [Recovered/Resolved]
